FAERS Safety Report 6341225-8 (Version None)
Quarter: 2009Q3

REPORT INFORMATION
  Report Type: 
  Country: None (occurrence: None)
  Receive Date: 20090904
  Receipt Date: 20090610
  Transmission Date: 20100115
  Serious: No
  Sender: FDA-Public Use
  Company Number: A0790132A

PATIENT
  Age: 75 Year
  Sex: Male

DRUGS (17)
  1. ROPINIROLE [Suspect]
     Indication: RESTLESS LEGS SYNDROME
     Dosage: .25MG THREE TIMES PER DAY
     Route: 048
     Dates: start: 20070101
  2. RANITIDINE [Concomitant]
  3. LEVOTHYROXINE [Concomitant]
  4. FUROSEMIDE [Concomitant]
  5. ACETAMINOPHEN [Concomitant]
  6. TRAZODONE [Concomitant]
  7. NEPHROCAPS [Concomitant]
  8. LISINOPRIL [Concomitant]
  9. MAGNESIUM OXIDE [Concomitant]
  10. CALCIUM ACETATE [Concomitant]
  11. ALLOPURINOL [Concomitant]
  12. CLOPIDOGREL [Concomitant]
  13. ASPIRIN [Concomitant]
  14. LABETALOL HCL [Concomitant]
  15. ATORVASTATIN [Concomitant]
  16. ERGOCALCIFEROL [Concomitant]
  17. CYANOCOBALAMIN [Concomitant]

REACTIONS (1)
  - DRUG INEFFECTIVE [None]
